FAERS Safety Report 5167968-X (Version None)
Quarter: 2006Q4

REPORT INFORMATION
  Report Type: 
  Country: None (occurrence: None)
  Receive Date: 20061208
  Receipt Date: 20051205
  Transmission Date: 20070319
  Serious: No
  Sender: FDA-Public Use
  Company Number: US-GLAXOSMITHKLINE-A0584648A

PATIENT
  Age: 77 Year
  Sex: Female

DRUGS (11)
  1. AVANDAMET [Suspect]
     Dosage: 1TAB TWICE PER DAY
     Route: 048
     Dates: start: 20050801
  2. HUMALOG [Concomitant]
  3. PRINZIDE [Concomitant]
  4. CLONIDINE [Concomitant]
  5. NORVASC [Concomitant]
  6. DIGOXIN [Concomitant]
  7. FOSAMAX [Concomitant]
  8. VYTORIN [Concomitant]
  9. NEURONTIN [Concomitant]
  10. ULTRAM [Concomitant]
  11. XANAX [Concomitant]

REACTIONS (3)
  - OEDEMA PERIPHERAL [None]
  - SWELLING FACE [None]
  - WEIGHT INCREASED [None]
